FAERS Safety Report 10681756 (Version 2)
Quarter: 2015Q2

REPORT INFORMATION
  Report Type: Report from Study
  Country: US (occurrence: US)
  Receive Date: 20141230
  Receipt Date: 20150622
  Transmission Date: 20150821
  Serious: Yes (Hospitalization)
  Sender: FDA-Public Use
  Company Number: US-ROCHE-1514266

PATIENT
  Age: 63 Year
  Sex: Female
  Weight: 87 kg

DRUGS (7)
  1. VALIUM [Suspect]
     Active Substance: DIAZEPAM
     Indication: ANXIETY
     Dosage: AT BEDTIME AS NEEDED
     Route: 048
     Dates: start: 20140521, end: 20141003
  2. PALBOCICLIB [Suspect]
     Active Substance: PALBOCICLIB
     Indication: BREAST CANCER METASTATIC
     Dosage: DAILY FOR 3 WEEKS FOLLOWED BY 1 WEEK OFF
     Route: 048
     Dates: start: 20140326
  3. PROMETHAZINE HYDROCHLORIDE. [Suspect]
     Active Substance: PROMETHAZINE HYDROCHLORIDE
     Indication: PROPHYLAXIS OF NAUSEA AND VOMITING
     Route: 048
     Dates: start: 20140918, end: 20141003
  4. ONDASETRON [Concomitant]
     Active Substance: ONDANSETRON
  5. METHYLPREDNISOLONE. [Concomitant]
     Active Substance: METHYLPREDNISOLONE
     Route: 048
  6. FULVESTRANT [Suspect]
     Active Substance: FULVESTRANT
     Indication: BREAST CANCER METASTATIC
     Dosage: DAY 1 AND 15 OF CYCLE 1, THEN ON DAY 1 EACH SUBSEQUENT EVERY 28 DAYS
     Route: 030
     Dates: start: 20140910
  7. ESGIC [Suspect]
     Active Substance: ACETAMINOPHEN\BUTALBITAL\CAFFEINE
     Indication: MIGRAINE
     Route: 048
     Dates: start: 20140918, end: 20141003

REACTIONS (3)
  - Chronic obstructive pulmonary disease [Recovered/Resolved]
  - Troponin increased [Recovered/Resolved]
  - Sedation [Recovered/Resolved]

NARRATIVE: CASE EVENT DATE: 20141003
